FAERS Safety Report 8582263-4 (Version None)
Quarter: 2012Q2

REPORT INFORMATION
  Report Type: 
  Country: None (occurrence: None)
  Receive Date: 20120423
  Receipt Date: 20090928
  Transmission Date: 20120825
  Serious: Yes (Other)
  Sender: FDA-Public Use
  Company Number: PHEH2009US09922

PATIENT
  Sex: Male

DRUGS (7)
  1. GLIMEPIRIDE [Concomitant]
  2. COREG [Concomitant]
  3. JANUVIA (SITAGLIPIN PHOSPHATE) [Concomitant]
  4. EXJADE [Suspect]
     Indication: MYELODYSPLASTIC SYNDROME
     Dosage: 2500 MG, QD, ORAL
     Route: 048
     Dates: start: 20090731, end: 20090818
  5. EXJADE [Suspect]
     Indication: CHRONIC LYMPHOCYTIC LEUKAEMIA
     Dosage: 2500 MG, QD, ORAL
     Route: 048
     Dates: start: 20090731, end: 20090818
  6. EXJADE [Suspect]
     Indication: ANAEMIA
     Dosage: 2500 MG, QD, ORAL
     Route: 048
     Dates: start: 20090731, end: 20090818
  7. HYZAAR [Concomitant]

REACTIONS (3)
  - GASTROINTESTINAL ULCER [None]
  - ABDOMINAL PAIN UPPER [None]
  - RENAL FUNCTION TEST ABNORMAL [None]
